FAERS Safety Report 21612484 (Version 4)
Quarter: 2023Q1

REPORT INFORMATION
  Report Type: Spontaneous
  Country: JP (occurrence: JP)
  Receive Date: 20221118
  Receipt Date: 20230309
  Transmission Date: 20230417
  Serious: Yes (Hospitalization, Other)
  Sender: FDA-Public Use
  Company Number: JP-ONO-2022JP030624

PATIENT
  Age: 76 Year
  Sex: Male
  Weight: 60 kg

DRUGS (25)
  1. OPDIVO [Suspect]
     Active Substance: NIVOLUMAB
     Indication: Head and neck cancer
     Route: 041
     Dates: start: 20220519, end: 20220616
  2. OPDIVO [Suspect]
     Active Substance: NIVOLUMAB
  3. LANSOPRAZOLE [Suspect]
     Active Substance: LANSOPRAZOLE
     Indication: Product used for unknown indication
     Dosage: TABLET, ORALLY DISINTEGRATING?OD TABLETS 15 MG
     Route: 048
     Dates: end: 20220818
  4. CRESTOR [Concomitant]
     Active Substance: ROSUVASTATIN CALCIUM
     Indication: Product used for unknown indication
     Dosage: UNK
     Route: 048
  5. CRESTOR [Concomitant]
     Active Substance: ROSUVASTATIN CALCIUM
     Dosage: UNK
     Route: 048
  6. BISOPROLOL FUMARATE [Concomitant]
     Active Substance: BISOPROLOL FUMARATE
     Indication: Product used for unknown indication
     Dosage: UNK
     Route: 048
  7. BISOPROLOL FUMARATE [Concomitant]
     Active Substance: BISOPROLOL FUMARATE
     Dosage: UNK
     Route: 048
  8. CARBOCYSTEINE [Concomitant]
     Active Substance: CARBOCYSTEINE
     Indication: Product used for unknown indication
     Dosage: UNK
     Route: 048
  9. CARBOCYSTEINE [Concomitant]
     Active Substance: CARBOCYSTEINE
     Dosage: UNK
     Route: 048
  10. RACOL [CHLORAMPHENICOL SODIUM SUCCINATE] [Concomitant]
     Indication: Product used for unknown indication
     Dosage: UNK
     Route: 050
  11. RACOL [CHLORAMPHENICOL SODIUM SUCCINATE] [Concomitant]
     Dosage: UNK
     Route: 050
  12. CALONAL [Concomitant]
     Active Substance: ACETAMINOPHEN
     Indication: Product used for unknown indication
     Dosage: UNK
     Route: 048
  13. CALONAL [Concomitant]
     Active Substance: ACETAMINOPHEN
     Dosage: UNK
     Route: 048
  14. INSULIN LISPRO(GENETICAL RECOMBINATION) [Concomitant]
     Indication: Product used for unknown indication
     Dosage: UNK
     Route: 058
  15. INSULIN LISPRO(GENETICAL RECOMBINATION) [Concomitant]
     Dosage: UNK
     Route: 058
  16. TRESIBA [Concomitant]
     Active Substance: INSULIN DEGLUDEC
     Dosage: UNK
     Route: 058
  17. TRESIBA [Concomitant]
     Active Substance: INSULIN DEGLUDEC
     Dosage: UNK
     Route: 058
  18. ERBITUX [Concomitant]
     Active Substance: CETUXIMAB
     Indication: Head and neck cancer
     Dates: start: 20220714
  19. CANDESARTAN [Concomitant]
     Active Substance: CANDESARTAN
     Indication: Product used for unknown indication
     Dates: end: 20220807
  20. ASPIRIN [Concomitant]
     Active Substance: ASPIRIN
     Indication: Product used for unknown indication
     Dosage: ORAL DRUG UNSPECIFIED FORM
     Route: 048
  21. ASPIRIN [Concomitant]
     Active Substance: ASPIRIN
     Dosage: ORAL DRUG UNSPECIFIED FORM
     Route: 048
  22. ROZEREM [Concomitant]
     Active Substance: RAMELTEON
     Indication: Product used for unknown indication
     Route: 048
  23. ROZEREM [Concomitant]
     Active Substance: RAMELTEON
     Route: 048
  24. RISPERDAL [Concomitant]
     Active Substance: RISPERIDONE
     Indication: Product used for unknown indication
     Dosage: SOLUTION (EXCEPT SYRUP)
     Route: 048
  25. RISPERDAL [Concomitant]
     Active Substance: RISPERIDONE
     Dosage: SOLUTION (EXCEPT SYRUP)
     Route: 048

REACTIONS (6)
  - Urinary tract disorder [Recovering/Resolving]
  - Pneumonia aspiration [Unknown]
  - Acute kidney injury [Recovering/Resolving]
  - Tubulointerstitial nephritis [Recovering/Resolving]
  - Blood creatinine increased [Recovering/Resolving]
  - Malignant neoplasm progression [Unknown]

NARRATIVE: CASE EVENT DATE: 20220622
